FAERS Safety Report 12630497 (Version 2)
Quarter: 2016Q3

REPORT INFORMATION
  Report Type: Spontaneous
  Country: US (occurrence: US)
  Receive Date: 20160808
  Receipt Date: 20160831
  Transmission Date: 20161109
  Serious: No
  Sender: FDA-Public Use
  Company Number: US-PFIZER INC-2016342043

PATIENT

DRUGS (1)
  1. QUELICIN [Suspect]
     Active Substance: SUCCINYLCHOLINE CHLORIDE
     Dosage: 200MG/10ML VIAL

REACTIONS (2)
  - Vomiting [Unknown]
  - Drug ineffective [Unknown]
